FAERS Safety Report 6565615-3 (Version None)
Quarter: 2010Q1

REPORT INFORMATION
  Report Type: 
  Country: None (occurrence: None)
  Receive Date: 20100201
  Receipt Date: 20100122
  Transmission Date: 20100710
  Serious: Yes (Hospitalization, Other)
  Sender: FDA-Public Use
  Company Number: US-WYE-H12823910

PATIENT
  Age: 78 Year
  Sex: Male

DRUGS (15)
  1. TEMSIROLIMUS [Suspect]
     Indication: MULTIPLE MYELOMA
     Dosage: 25 MG DAYS 1,8,15, 22, 29 EVERY 35 DAYS
     Route: 042
     Dates: start: 20091006, end: 20091215
  2. TYLENOL (CAPLET) [Concomitant]
  3. ASPIRIN [Concomitant]
  4. GLIPIZIDE [Concomitant]
  5. LEVOTHYROXINE SODIUM [Concomitant]
  6. LIPITOR [Concomitant]
  7. FOLATE SODIUM [Concomitant]
  8. NYSTATIN [Concomitant]
  9. PROZAC [Concomitant]
  10. TRAZODONE [Concomitant]
  11. VALACYCLOVIR HCL [Concomitant]
  12. LANTUS [Concomitant]
  13. HUMALOG [Concomitant]
  14. BORTEZOMIB [Suspect]
     Indication: MULTIPLE MYELOMA
     Dosage: 1.6 MG/M2 DAYS 1, 8, 15, 22 EVERY 35 DAYS
     Route: 042
     Dates: start: 20091006, end: 20091215
  15. ASCORBIC ACID/ERGOCALCIFEROL/FOLIC ACID/RETINOL/TOCOPHEROL/VITAMIN B N [Concomitant]

REACTIONS (2)
  - ATRIAL FIBRILLATION [None]
  - PNEUMONIA VIRAL [None]
